FAERS Safety Report 12380418 (Version 1)
Quarter: 2016Q2

REPORT INFORMATION
  Report Type: Spontaneous
  Country: US (occurrence: None)
  Receive Date: 20160517
  Receipt Date: 20160517
  Transmission Date: 20160815
  Serious: Yes (Disabling, Other)
  Sender: FDA-Public Use
  Company Number: None

PATIENT
  Age: 38 Year
  Sex: Female
  Weight: 63.5 kg

DRUGS (2)
  1. TRANSDERM SCOP [Suspect]
     Active Substance: SCOPOLAMINE
     Indication: MOTION SICKNESS
     Dosage: TRANSDERM SCOP (SCOPOLAMINE), 1.5 MG?6 PATCH(ES) - 1 EVERY THREE DAYS?APPLIED AS MEDICASTED PATCH TO SKIN
     Dates: start: 20160504, end: 20160514
  2. CALCIUM SUPPLEMENT [Concomitant]
     Active Substance: CALCIUM

REACTIONS (10)
  - Decreased appetite [None]
  - Nausea [None]
  - Drug withdrawal syndrome [None]
  - Dizziness [None]
  - Tremor [None]
  - Dry mouth [None]
  - Headache [None]
  - Confusional state [None]
  - Vision blurred [None]
  - Decreased activity [None]

NARRATIVE: CASE EVENT DATE: 20160514
